FAERS Safety Report 8933335 (Version 1)
Quarter: 2012Q4

REPORT INFORMATION
  Report Type: 
  Country: US (occurrence: US)
  Receive Date: 20121128
  Receipt Date: 20121128
  Transmission Date: 20130627
  Serious: Yes (Hospitalization, Other)
  Sender: FDA-Public Use
  Company Number: US-ABBOTT-12P-163-1011953-00

PATIENT
  Age: 65 None
  Sex: Male

DRUGS (5)
  1. HUMIRA [Suspect]
     Indication: RHEUMATOID ARTHRITIS
     Dates: start: 2006
  2. METHOTREXATE [Concomitant]
     Indication: PRODUCT USED FOR UNKNOWN INDICATION
  3. PLAQUENIL [Concomitant]
     Indication: PRODUCT USED FOR UNKNOWN INDICATION
  4. LEUCORVIN [Concomitant]
     Indication: PRODUCT USED FOR UNKNOWN INDICATION
  5. FOLIC ACID [Concomitant]
     Indication: PRODUCT USED FOR UNKNOWN INDICATION

REACTIONS (7)
  - Foot deformity [Recovering/Resolving]
  - Lung disorder [Unknown]
  - Pleural effusion [Recovered/Resolved]
  - Interstitial lung disease [Not Recovered/Not Resolved]
  - Pulmonary fibrosis [Unknown]
  - Sinusitis [Recovered/Resolved]
  - Rheumatoid lung [Not Recovered/Not Resolved]
